FAERS Safety Report 17662308 (Version 3)
Quarter: 2020Q2

REPORT INFORMATION
  Report Type: Spontaneous
  Country: US (occurrence: US)
  Receive Date: 20200413
  Receipt Date: 20200423
  Transmission Date: 20200713
  Serious: No
  Sender: FDA-Public Use
  Company Number: US-PFIZER INC-2020148914

PATIENT
  Age: 61 Year
  Sex: Female

DRUGS (2)
  1. ESTRING [Suspect]
     Active Substance: ESTRADIOL
     Indication: CYSTITIS INTERSTITIAL
     Dosage: UNK
  2. BLADDER EASE [Concomitant]
     Dosage: UNK

REACTIONS (3)
  - Contraindicated product prescribed [Unknown]
  - Product use in unapproved indication [Unknown]
  - Off label use [Unknown]
